FAERS Safety Report 9045329 (Version 2)
Quarter: 2013Q2

REPORT INFORMATION
  Report Type: Spontaneous
  Country: FR (occurrence: FR)
  Receive Date: 20130131
  Receipt Date: 20130506
  Transmission Date: 20140414
  Serious: Yes (Hospitalization)
  Sender: FDA-Public Use
  Company Number: PHHY2013FR004651

PATIENT
  Age: 16 Year
  Sex: Female

DRUGS (8)
  1. LEELOO [Suspect]
     Indication: CONTRACEPTION
     Route: 048
     Dates: start: 201204
  2. CLARITHROMYCIN [Suspect]
     Indication: LUNG DISORDER
     Dosage: 500 MG, BID
     Route: 048
     Dates: start: 20121001, end: 20121007
  3. TERCIAN [Suspect]
     Indication: DECREASED APPETITE
     Dosage: 10 DF, AT EVENING
     Route: 048
     Dates: end: 2012
  4. TERCIAN [Suspect]
     Indication: AFFECTIVE DISORDER
     Route: 048
     Dates: start: 20121018
  5. VENTOLINE [Concomitant]
  6. FLIXOTIDE [Concomitant]
  7. SINGULAIR [Concomitant]
     Dosage: 10 MG
  8. AUGMENTIN [Concomitant]

REACTIONS (2)
  - Cerebral venous thrombosis [Recovered/Resolved]
  - Headache [Recovered/Resolved]
